FAERS Safety Report 25920203 (Version 1)
Quarter: 2025Q4

REPORT INFORMATION
  Report Type: Spontaneous
  Country: US (occurrence: None)
  Receive Date: 20251011
  Receipt Date: 20251011
  Transmission Date: 20260117
  Serious: Yes (Hospitalization)
  Sender: FDA-CTU
  Company Number: None

PATIENT
  Sex: Female
  Weight: 44.1 kg

DRUGS (1)
  1. WINREVAIR [Suspect]
     Active Substance: SOTATERCEPT-CSRK
     Indication: Pulmonary arterial hypertension
     Dosage: INJECT 0.3 ML UNDER THE SKIN FOR 1 DOSES, THEN INCREASE TO 0.7 ML FOR TARGET DOSE. EACH DOSE SHOULD BE GIVEN 3 WEEKS APART.??
     Route: 058
     Dates: start: 20250915

REACTIONS (2)
  - Lung transplant rejection [None]
  - Weight increased [None]
